FAERS Safety Report 4325784-2 (Version None)
Quarter: 2004Q1

REPORT INFORMATION
  Report Type: 
  Country: None (occurrence: None)
  Receive Date: 20040323
  Receipt Date: 20040310
  Transmission Date: 20041129
  Serious: Yes (Hospitalization)
  Sender: FDA-Public Use
  Company Number: 2004-01050

PATIENT
  Age: 60 Year
  Sex: Female

DRUGS (4)
  1. PREDNISONE [Suspect]
  2. INSULIN [Concomitant]
  3. FLUOXETINE [Concomitant]
  4. CAPTOPRIL [Concomitant]

REACTIONS (1)
  - RETROPERITONEAL ABSCESS [None]
